FAERS Safety Report 21670661 (Version 1)
Quarter: 2022Q4

REPORT INFORMATION
  Report Type: Report from Study
  Country: US (occurrence: US)
  Receive Date: 20221202
  Receipt Date: 20221202
  Transmission Date: 20230113
  Serious: Yes (Other)
  Sender: FDA-Public Use
  Company Number: US-ABBVIE-4220506

PATIENT

DRUGS (1)
  1. HUMIRA [Suspect]
     Active Substance: ADALIMUMAB
     Indication: Psoriasis
     Dosage: END DATE :AUG 2022
     Route: 058

REACTIONS (1)
  - Neck surgery [Recovered/Resolved]

NARRATIVE: CASE EVENT DATE: 20220101
